FAERS Safety Report 10305951 (Version 1)
Quarter: 2014Q3

REPORT INFORMATION
  Report Type: Spontaneous
  Country: US (occurrence: None)
  Receive Date: 20140714
  Receipt Date: 20140714
  Transmission Date: 20150326
  Serious: No
  Sender: FDA-Public Use
  Company Number: None

PATIENT
  Age: 43 Year
  Sex: Female
  Weight: 61.24 kg

DRUGS (1)
  1. CIPRODEX [Suspect]
     Active Substance: CIPROFLOXACIN HYDROCHLORIDE\DEXAMETHASONE
     Indication: INFECTION PROPHYLAXIS
     Dosage: 5 DROPS
     Dates: start: 20140606, end: 20140613

REACTIONS (7)
  - Headache [None]
  - Pruritus [None]
  - Deafness [None]
  - Ear swelling [None]
  - Drug hypersensitivity [None]
  - Inflammation [None]
  - Vertigo [None]

NARRATIVE: CASE EVENT DATE: 20140605
